FAERS Safety Report 9768914 (Version 1)
Quarter: 2013Q4

REPORT INFORMATION
  Report Type: Spontaneous
  Country: FR (occurrence: FR)
  Receive Date: 20131218
  Receipt Date: 20131218
  Transmission Date: 20140711
  Serious: Yes (Hospitalization, Other)
  Sender: FDA-Public Use
  Company Number: FR-009507513-1312FRA003777

PATIENT
  Age: 53 Year
  Sex: Female

DRUGS (3)
  1. TIENAM 500MG/500MG, POUDRE POUR PERFUSION [Suspect]
     Dosage: UNK
     Dates: start: 20040218, end: 20040223
  2. TARGOCID [Suspect]
     Dosage: UNK
     Dates: start: 20040218, end: 20040223
  3. NOROXINE [Suspect]
     Indication: ASCITES
     Dosage: 1 DF, QD
     Route: 048
     Dates: start: 20040210

REACTIONS (3)
  - Pancytopenia [Recovered/Resolved]
  - Neutropenia [Recovered/Resolved]
  - Leukopenia [Recovered/Resolved]
